FAERS Safety Report 6519579-9 (Version None)
Quarter: 2009Q4

REPORT INFORMATION
  Report Type: 
  Country: None (occurrence: None)
  Receive Date: 20091228
  Receipt Date: 20091224
  Transmission Date: 20100525
  Serious: Yes (Life-Threatening, Hospitalization, Other)
  Sender: FDA-Public Use
  Company Number: JP-JNJFOC-20091104703

PATIENT
  Sex: Female

DRUGS (7)
  1. TOPINA [Suspect]
     Indication: EPILEPSY
     Route: 048
  2. TOPINA [Suspect]
     Route: 048
  3. ALEVIATIN [Suspect]
     Indication: EPILEPSY
     Route: 048
  4. XELODA [Suspect]
     Indication: BREAST CANCER
     Route: 048
  5. LAPATINIB [Suspect]
     Indication: BREAST CANCER
     Route: 048
  6. PREDNISOLONE [Concomitant]
     Route: 048
  7. GASTER D [Concomitant]
     Route: 048

REACTIONS (9)
  - BLOOD UREA INCREASED [None]
  - BRAIN CANCER METASTATIC [None]
  - BRAIN OEDEMA [None]
  - DYSPHAGIA [None]
  - GAMMA-GLUTAMYLTRANSFERASE INCREASED [None]
  - HEMIPLEGIA [None]
  - NEUTROPHIL COUNT INCREASED [None]
  - PARTIAL SEIZURES [None]
  - PLATELET COUNT DECREASED [None]
